FAERS Safety Report 17827643 (Version 2)
Quarter: 2020Q2

REPORT INFORMATION
  Report Type: Spontaneous
  Country: CA (occurrence: CA)
  Receive Date: 20200527
  Receipt Date: 20200611
  Transmission Date: 20200714
  Serious: Yes (Hospitalization, Other)
  Sender: FDA-Public Use
  Company Number: CA-BIOVITRUM-2020CA2713

PATIENT
  Age: 65 Year
  Sex: Female

DRUGS (8)
  1. SULFASALAZINE. [Suspect]
     Active Substance: SULFASALAZINE
     Indication: PRODUCT USED FOR UNKNOWN INDICATION
     Route: 065
  2. KINERET [Suspect]
     Active Substance: ANAKINRA
     Indication: PRODUCT USED FOR UNKNOWN INDICATION
     Route: 065
  3. METHOTREXATE. [Suspect]
     Active Substance: METHOTREXATE
     Indication: PRODUCT USED FOR UNKNOWN INDICATION
     Route: 065
  4. PLAQUENIL [Suspect]
     Active Substance: HYDROXYCHLOROQUINE SULFATE
     Indication: PRODUCT USED FOR UNKNOWN INDICATION
     Route: 065
  5. ARAVA [Suspect]
     Active Substance: LEFLUNOMIDE
     Indication: PRODUCT USED FOR UNKNOWN INDICATION
     Route: 065
  6. ENBREL [Suspect]
     Active Substance: ETANERCEPT
     Indication: RHEUMATOID ARTHRITIS
     Route: 065
  7. ORENCIA [Suspect]
     Active Substance: ABATACEPT
     Indication: PRODUCT USED FOR UNKNOWN INDICATION
     Route: 065
  8. PREDNISONE. [Suspect]
     Active Substance: PREDNISONE
     Indication: PRODUCT USED FOR UNKNOWN INDICATION
     Route: 065

REACTIONS (14)
  - Contraindicated product administered [Recovered/Resolved]
  - Infection [Recovered/Resolved]
  - Angiopathy [Recovered/Resolved]
  - Visual impairment [Recovered/Resolved]
  - Surgery [Recovered/Resolved]
  - Condition aggravated [Recovered/Resolved]
  - Venous injury [Recovered/Resolved]
  - Pneumonia [Recovered/Resolved]
  - Drug hypersensitivity [Recovered/Resolved]
  - Adverse event [Recovered/Resolved]
  - Venous operation [Recovered/Resolved]
  - Post procedural contusion [Recovered/Resolved]
  - Rheumatoid arthritis [Recovered/Resolved]
  - Abdominal discomfort [Recovered/Resolved]
